FAERS Safety Report 12718010 (Version 1)
Quarter: 2016Q3

REPORT INFORMATION
  Report Type: Report from Study
  Country: IL (occurrence: IL)
  Receive Date: 20160906
  Receipt Date: 20160906
  Transmission Date: 20161109
  Serious: Yes (Life-Threatening, Hospitalization, Other)
  Sender: FDA-Public Use
  Company Number: IL-SA-2016SA163808

PATIENT
  Age: 71 Year
  Sex: Female
  Weight: 46 kg

DRUGS (19)
  1. APIXABAN [Suspect]
     Active Substance: APIXABAN
     Route: 048
     Dates: start: 20160704, end: 20160810
  2. INVESTIGATIONAL DRUG [Suspect]
     Active Substance: INVESTIGATIONAL PRODUCT
     Route: 048
     Dates: start: 20160802, end: 20160810
  3. SIMVASTATIN. [Concomitant]
     Active Substance: SIMVASTATIN
     Dates: start: 2005, end: 20160630
  4. NITROGLYCERINE [Concomitant]
     Active Substance: NITROGLYCERIN
  5. CLOPIDOGREL BISULFATE. [Suspect]
     Active Substance: CLOPIDOGREL BISULFATE
     Route: 048
     Dates: start: 20160704, end: 20160810
  6. METOPROLOL. [Concomitant]
     Active Substance: METOPROLOL
     Dates: start: 20160630
  7. LERCANIDIPINE [Concomitant]
     Active Substance: LERCANIDIPINE
     Dates: start: 201412, end: 20160704
  8. MORPHINE [Concomitant]
     Active Substance: MORPHINE
  9. CLONIDINE. [Concomitant]
     Active Substance: CLONIDINE
     Dates: start: 20160629
  10. CANDESARTAN [Concomitant]
     Active Substance: CANDESARTAN
     Dates: start: 20160630
  11. METOPROLOL. [Concomitant]
     Active Substance: METOPROLOL
     Dates: start: 20160701, end: 20160701
  12. FUROSEMIDE. [Concomitant]
     Active Substance: FUROSEMIDE
     Dates: start: 201412
  13. BROTIZOLAM [Concomitant]
     Active Substance: BROTIZOLAM
     Dates: start: 2012
  14. MORPHINE [Concomitant]
     Active Substance: MORPHINE
  15. LERCANIDIPINE [Concomitant]
     Active Substance: LERCANIDIPINE
     Dates: start: 20160705
  16. LANSOPRAZOLE. [Concomitant]
     Active Substance: LANSOPRAZOLE
     Dates: start: 2010
  17. SIMVASTATIN. [Concomitant]
     Active Substance: SIMVASTATIN
     Dates: start: 20160705
  18. METFORMIN [Concomitant]
     Active Substance: METFORMIN HYDROCHLORIDE
     Dates: start: 2003
  19. GLIBENCLAMIDE [Concomitant]
     Active Substance: GLYBURIDE
     Dates: start: 201508

REACTIONS (1)
  - Pulmonary oedema [Recovered/Resolved]

NARRATIVE: CASE EVENT DATE: 20160810
